FAERS Safety Report 17229037 (Version 5)
Quarter: 2022Q2

REPORT INFORMATION
  Report Type: Report from Study
  Country: BR (occurrence: BR)
  Receive Date: 20200103
  Receipt Date: 20220419
  Transmission Date: 20220721
  Serious: Yes (Hospitalization, Disabling, Other)
  Sender: FDA-Public Use
  Company Number: None

PATIENT
  Sex: Male
  Weight: 94 kg

DRUGS (4)
  1. COSENTYX [Suspect]
     Active Substance: SECUKINUMAB
     Indication: Psoriatic arthropathy
     Dosage: 300 MG, QMO
     Route: 058
     Dates: start: 20180108
  2. COSENTYX [Suspect]
     Active Substance: SECUKINUMAB
     Dosage: 300 MG, QMO
     Route: 058
     Dates: start: 201909
  3. COSENTYX [Suspect]
     Active Substance: SECUKINUMAB
     Dosage: UNK
     Route: 058
     Dates: start: 20190913
  4. COSENTYX [Suspect]
     Active Substance: SECUKINUMAB
     Dosage: UNK
     Route: 058
     Dates: end: 20220209

REACTIONS (36)
  - Gait inability [Not Recovered/Not Resolved]
  - Pain [Not Recovered/Not Resolved]
  - Chronic myeloid leukaemia [Not Recovered/Not Resolved]
  - Pain in extremity [Not Recovered/Not Resolved]
  - Adverse drug reaction [Unknown]
  - Neck pain [Unknown]
  - Haematochezia [Unknown]
  - Angina pectoris [Unknown]
  - Bone pain [Unknown]
  - Back pain [Unknown]
  - Groin pain [Unknown]
  - Retching [Unknown]
  - Chest pain [Unknown]
  - Limb discomfort [Unknown]
  - Constipation [Unknown]
  - Headache [Unknown]
  - Arthralgia [Recovering/Resolving]
  - Spinal cord injury [Not Recovered/Not Resolved]
  - Psoriatic arthropathy [Unknown]
  - Contusion [Not Recovered/Not Resolved]
  - Skin lesion [Not Recovered/Not Resolved]
  - Oedema [Unknown]
  - Malaise [Recovering/Resolving]
  - Impaired quality of life [Unknown]
  - Oedema peripheral [Unknown]
  - Spinal pain [Not Recovered/Not Resolved]
  - Rash macular [Not Recovered/Not Resolved]
  - Back pain [Recovered/Resolved with Sequelae]
  - Arthritis [Recovered/Resolved with Sequelae]
  - Joint injury [Not Recovered/Not Resolved]
  - Anaemia [Unknown]
  - Spondylitis [Not Recovered/Not Resolved]
  - Abdominal pain [Unknown]
  - Musculoskeletal stiffness [Recovering/Resolving]
  - Fatigue [Unknown]
  - Diarrhoea [Unknown]

NARRATIVE: CASE EVENT DATE: 20190101
